FAERS Safety Report 4490391-8 (Version None)
Quarter: 2004Q4

REPORT INFORMATION
  Report Type: 
  Country: None (occurrence: None)
  Receive Date: 20041027
  Receipt Date: 20041019
  Transmission Date: 20050328
  Serious: Yes (Other)
  Sender: FDA-Public Use
  Company Number: 2004230179US

PATIENT
  Sex: Male
  Weight: 63.5 kg

DRUGS (5)
  1. GLYNASE [Suspect]
     Indication: HYPERGLYCAEMIA
     Dosage: SEE IMAGE
     Route: 048
     Dates: start: 19960101, end: 20021001
  2. GLYNASE [Suspect]
     Indication: HYPERGLYCAEMIA
     Dosage: SEE IMAGE
     Route: 048
     Dates: start: 20030701
  3. LIPITOR [Suspect]
     Indication: HIGH DENSITY LIPOPROTEIN DECREASED
     Dosage: 10 MG, QD, ORAL
     Route: 048
     Dates: start: 20020301, end: 20021001
  4. CENTRUM (VITAMINS NOS) [Concomitant]
  5. PLAVIX [Concomitant]

REACTIONS (7)
  - APNOEA [None]
  - CORONARY ARTERY OCCLUSION [None]
  - HYPERGLYCAEMIA [None]
  - LYMPHOMA [None]
  - NECK PAIN [None]
  - NODULE [None]
  - RASH [None]
